FAERS Safety Report 17489623 (Version 1)
Quarter: 2020Q1

REPORT INFORMATION
  Report Type: Spontaneous
  Country: NO (occurrence: NO)
  Receive Date: 20200303
  Receipt Date: 20200303
  Transmission Date: 20200409
  Serious: Yes (Hospitalization)
  Sender: FDA-Public Use
  Company Number: NO-MYLANLABS-2020M1022907

PATIENT
  Age: 55 Year
  Sex: Female

DRUGS (6)
  1. KLACID OD [Suspect]
     Active Substance: CLARITHROMYCIN
     Indication: ATYPICAL MYCOBACTERIAL PNEUMONIA
     Dosage: UNK
     Route: 048
     Dates: start: 201810, end: 201901
  2. RIFAMPICIN [Suspect]
     Active Substance: RIFAMPIN
     Indication: ATYPICAL MYCOBACTERIAL PNEUMONIA
     Dosage: 600 MILLIGRAM, QD
     Route: 048
     Dates: start: 201810, end: 20190614
  3. MYAMBUTOL [Suspect]
     Active Substance: ETHAMBUTOL HYDROCHLORIDE
     Indication: ATYPICAL MYCOBACTERIAL PNEUMONIA
     Dosage: 900 MILLIGRAM, QD
     Route: 048
     Dates: start: 201810, end: 20190614
  4. AZITROMAX [Suspect]
     Active Substance: AZITHROMYCIN ANHYDROUS
     Indication: ATYPICAL MYCOBACTERIAL PNEUMONIA
     Dosage: 250 MILLIGRAM, QD
     Route: 048
     Dates: start: 201901, end: 20190614
  5. SERETIDE [Concomitant]
     Active Substance: FLUTICASONE PROPIONATE\SALMETEROL XINAFOATE
     Dosage: 1 DOSAGE FORM, BID
     Route: 055
  6. SINGULAIR [Concomitant]
     Active Substance: MONTELUKAST SODIUM
     Dosage: 10 MILLIGRAM, QD
     Route: 048

REACTIONS (2)
  - Eosinophilic oesophagitis [Recovered/Resolved]
  - Gastroenteritis eosinophilic [Recovered/Resolved]

NARRATIVE: CASE EVENT DATE: 20190604
